FAERS Safety Report 14036145 (Version 1)
Quarter: 2017Q4

REPORT INFORMATION
  Report Type: Spontaneous
  Country: US (occurrence: US)
  Receive Date: 20171003
  Receipt Date: 20171003
  Transmission Date: 20180321
  Serious: No
  Sender: FDA-Public Use
  Company Number: US-ROCHE-1874693

PATIENT
  Sex: Female
  Weight: 48.3 kg

DRUGS (3)
  1. CYPROHEPTADINE. [Concomitant]
     Active Substance: CYPROHEPTADINE
     Route: 048
  2. ZELBORAF [Suspect]
     Active Substance: VEMURAFENIB
     Indication: BRAIN NEOPLASM MALIGNANT
     Route: 048
     Dates: start: 20160826, end: 20170303
  3. ZELBORAF [Suspect]
     Active Substance: VEMURAFENIB
     Route: 048
     Dates: start: 20160728, end: 20170107

REACTIONS (3)
  - Headache [Recovering/Resolving]
  - Irritability [Recovering/Resolving]
  - Drug ineffective [Unknown]
